FAERS Safety Report 25855003 (Version 1)
Quarter: 2025Q3

REPORT INFORMATION
  Report Type: Spontaneous
  Country: US (occurrence: US)
  Receive Date: 20250927
  Receipt Date: 20250927
  Transmission Date: 20251020
  Serious: No
  Sender: SANOFI AVENTIS
  Company Number: US-SA-2025SA286249

PATIENT
  Age: 25 Year
  Sex: Female

DRUGS (1)
  1. DUPIXENT [Suspect]
     Active Substance: DUPILUMAB
     Indication: Dermatitis atopic
     Dosage: 300 MG, QOW
     Route: 058
     Dates: start: 202506

REACTIONS (6)
  - Hypersensitivity [Unknown]
  - Sneezing [Unknown]
  - Rhinorrhoea [Unknown]
  - Eye pruritus [Unknown]
  - Dry eye [Unknown]
  - Blepharitis [Unknown]

NARRATIVE: CASE EVENT DATE: 20250101
